FAERS Safety Report 19205803 (Version 3)
Quarter: 2021Q3

REPORT INFORMATION
  Report Type: Spontaneous
  Country: US (occurrence: US)
  Receive Date: 20210503
  Receipt Date: 20210709
  Transmission Date: 20211014
  Serious: Yes (Death, Life-Threatening, Hospitalization, Other)
  Sender: FDA-Public Use
  Company Number: US-009507513-2104USA007385

PATIENT
  Age: 78 Year
  Sex: Male
  Weight: 74.83 kg

DRUGS (5)
  1. STERILE WATER [Suspect]
     Active Substance: WATER
     Indication: BASAL CELL CARCINOMA
     Dosage: UNK
     Route: 058
     Dates: start: 20210413
  2. INTRON A [Suspect]
     Active Substance: INTERFERON ALFA-2B
     Indication: BASAL CELL CARCINOMA
     Dosage: 3 MILLION UNITS (USUALLY DOSED EVERY MONTH PER PHYSICIAN BUT THIS WAS THE PATIENT^S FIRST INJECTION)
     Route: 058
     Dates: start: 20210413
  3. TRELEGY ELLIPTA [Concomitant]
     Active Substance: FLUTICASONE FUROATE\UMECLIDINIUM BROMIDE\VILANTEROL TRIFENATATE
     Route: 048
  4. FLUOXETINE [Concomitant]
     Active Substance: FLUOXETINE HYDROCHLORIDE
     Route: 048
  5. ROSUVASTATIN. [Concomitant]
     Active Substance: ROSUVASTATIN
     Route: 048

REACTIONS (5)
  - Dyspnoea [Recovered/Resolved]
  - Agitation [Unknown]
  - Tremor [Unknown]
  - Death [Fatal]
  - Product use in unapproved indication [Unknown]

NARRATIVE: CASE EVENT DATE: 20210413
